FAERS Safety Report 8843184 (Version 1)
Quarter: 2012Q4

REPORT INFORMATION
  Report Type: 
  Country: US (occurrence: US)
  Receive Date: 20121016
  Receipt Date: 20121016
  Transmission Date: 20130627
  Serious: No
  Sender: FDA-Public Use
  Company Number: US-ASTRAZENECA-2012SE75335

PATIENT
  Age: 51 Year
  Sex: Male
  Weight: 80 kg

DRUGS (10)
  1. SYMBICORT PMDI [Suspect]
     Indication: ASTHMA
     Dosage: 160, UNKNOWN FREQUENCY
     Route: 055
  2. TIOTROPIUM [Concomitant]
  3. PROVENTIL [Concomitant]
  4. ASMANEX TWISTHALER [Concomitant]
  5. BUPROPION [Concomitant]
  6. LORATADINE [Concomitant]
  7. PREDNISONE [Concomitant]
  8. MONTELUKAST [Concomitant]
  9. CLINDAMYCIN [Concomitant]
  10. PERCOET [Concomitant]

REACTIONS (2)
  - Asthma [Unknown]
  - Drug ineffective [Unknown]
